FAERS Safety Report 7919324-6 (Version None)
Quarter: 2011Q4

REPORT INFORMATION
  Report Type: 
  Country: None (occurrence: None)
  Receive Date: 20111115
  Receipt Date: 20111115
  Transmission Date: 20120403
  Serious: Yes (Other)
  Sender: FDA-Public Use
  Company Number: None

PATIENT
  Sex: Female
  Weight: 63.6 kg

DRUGS (13)
  1. CENTRUM SILVER [Concomitant]
  2. WARFARIN SODIUM [Concomitant]
  3. VITAMIN D [Concomitant]
  4. PRADAXA [Suspect]
     Indication: ATRIAL FIBRILLATION
     Dosage: 75MG BID ORAL 047
     Route: 048
     Dates: start: 20111007
  5. SIMVASTATIN [Concomitant]
  6. NIACIN [Concomitant]
  7. ASPIRIN [Concomitant]
  8. ESOMEPRAZOLE [Concomitant]
  9. CALCIUM CARBONATE/VITAMIN D [Concomitant]
  10. RISEDRONATE SODIUM [Concomitant]
  11. AMIODARONE HCL [Concomitant]
  12. LISINOPRIL AND HYDROCHLOROTHIAZIDE [Concomitant]
  13. METOPROLOL TARTRATE [Concomitant]

REACTIONS (4)
  - ABDOMINAL PAIN UPPER [None]
  - PRURITUS [None]
  - INSOMNIA [None]
  - ABDOMINAL PAIN [None]
